FAERS Safety Report 25628124 (Version 1)
Quarter: 2025Q3

REPORT INFORMATION
  Report Type: Report from Study
  Country: EU (occurrence: EU)
  Receive Date: 20250731
  Receipt Date: 20250731
  Transmission Date: 20251021
  Serious: Yes (Hospitalization, Other)
  Sender: MERCK SHARP & DOHME LLC
  Company Number: EU-009507513-2258453

PATIENT
  Age: 69 Year
  Sex: Female

DRUGS (16)
  1. WINREVAIR [Suspect]
     Active Substance: SOTATERCEPT-CSRK
     Indication: Pulmonary arterial hypertension
     Dates: start: 20250203
  2. WINREVAIR [Suspect]
     Active Substance: SOTATERCEPT-CSRK
  3. WINREVAIR [Suspect]
     Active Substance: SOTATERCEPT-CSRK
  4. WINREVAIR [Suspect]
     Active Substance: SOTATERCEPT-CSRK
  5. WINREVAIR [Suspect]
     Active Substance: SOTATERCEPT-CSRK
     Indication: Pulmonary arterial hypertension
     Dates: start: 20250206, end: 20250206
  6. WINREVAIR [Suspect]
     Active Substance: SOTATERCEPT-CSRK
  7. WINREVAIR [Suspect]
     Active Substance: SOTATERCEPT-CSRK
  8. WINREVAIR [Suspect]
     Active Substance: SOTATERCEPT-CSRK
  9. WINREVAIR [Suspect]
     Active Substance: SOTATERCEPT-CSRK
  10. WINREVAIR [Suspect]
     Active Substance: SOTATERCEPT-CSRK
  11. WINREVAIR [Suspect]
     Active Substance: SOTATERCEPT-CSRK
  12. WINREVAIR [Suspect]
     Active Substance: SOTATERCEPT-CSRK
  13. SILDENAFIL [Concomitant]
     Active Substance: SILDENAFIL
  14. OPSUMIT [Concomitant]
     Active Substance: MACITENTAN
     Dosage: 10 MG 1-0-0
  15. UPTRAVI [Concomitant]
     Active Substance: SELEXIPAG
     Dosage: 600 MCG 1-0-1
  16. UPTRAVI [Concomitant]
     Active Substance: SELEXIPAG
     Dosage: 600 UG, 1 TABLET TWICE A DAY (1-0-1)

REACTIONS (8)
  - Oedema peripheral [Unknown]
  - Feeling abnormal [Recovered/Resolved with Sequelae]
  - Central venous catheterisation [Recovered/Resolved]
  - Fatigue [Recovered/Resolved with Sequelae]
  - Listless [Recovered/Resolved with Sequelae]
  - Epistaxis [Unknown]
  - Pain in extremity [Unknown]
  - Inappropriate schedule of product administration [Unknown]

NARRATIVE: CASE EVENT DATE: 20250101
